FAERS Safety Report 4439847-4 (Version None)
Quarter: 2004Q3

REPORT INFORMATION
  Report Type: 
  Country: None (occurrence: None)
  Receive Date: 20040902
  Receipt Date: 20040824
  Transmission Date: 20050211
  Serious: Yes (Hospitalization)
  Sender: FDA-Public Use
  Company Number: FR-JNJFOC-20040807904

PATIENT
  Age: 49 Year
  Sex: Male

DRUGS (7)
  1. TOPALGIC [Suspect]
     Indication: DRUG USE FOR UNKNOWN INDICATION
     Route: 049
  2. OFLOCET [Suspect]
     Indication: DRUG USE FOR UNKNOWN INDICATION
     Route: 049
  3. BRISTOPEN [Suspect]
     Indication: DRUG USE FOR UNKNOWN INDICATION
     Route: 042
  4. SECTRAL [Concomitant]
     Route: 049
  5. HEPARIN [Concomitant]
     Route: 042
  6. MEPRAL [Concomitant]
     Route: 049
  7. PREVISCAN [Concomitant]
     Route: 049

REACTIONS (4)
  - ALANINE AMINOTRANSFERASE INCREASED [None]
  - ASPARTATE AMINOTRANSFERASE INCREASED [None]
  - COAGULOPATHY [None]
  - DRUG INTERACTION [None]
